FAERS Safety Report 8499435-X (Version None)
Quarter: 2012Q3

REPORT INFORMATION
  Report Type: 
  Country: None (occurrence: None)
  Receive Date: 20120710
  Receipt Date: 20120702
  Transmission Date: 20120928
  Serious: Yes (Hospitalization, Disabling)
  Sender: FDA-Public Use
  Company Number: US-US-EMD SERONO, INC.-7124198

PATIENT
  Sex: Male
  Weight: 82 kg

DRUGS (3)
  1. REBIF [Suspect]
     Route: 058
     Dates: start: 20101209
  2. REBIF [Suspect]
     Indication: MULTIPLE SCLEROSIS
     Route: 058
     Dates: start: 20051021, end: 20090109
  3. KEPPRA [Concomitant]
     Indication: CONVULSION
     Dates: start: 20050101

REACTIONS (6)
  - GAIT DISTURBANCE [None]
  - PNEUMONIA ASPIRATION [None]
  - BEDRIDDEN [None]
  - DYSPRAXIA [None]
  - APHASIA [None]
  - DYSSTASIA [None]
